FAERS Safety Report 16201861 (Version 1)
Quarter: 2019Q2

REPORT INFORMATION
  Report Type: Spontaneous
  Country: US (occurrence: US)
  Receive Date: 20190416
  Receipt Date: 20190416
  Transmission Date: 20190711
  Serious: Yes (Other)
  Sender: FDA-Public Use
  Company Number: US-ELI_LILLY_AND_COMPANY-US201904006329

PATIENT
  Sex: Male

DRUGS (1)
  1. TRULICITY [Suspect]
     Active Substance: DULAGLUTIDE
     Indication: TYPE 2 DIABETES MELLITUS
     Dosage: 0.75 MG, WEEKLY (1/W)
     Route: 058

REACTIONS (7)
  - Glycosylated haemoglobin increased [Unknown]
  - Dysgeusia [Unknown]
  - Nausea [Unknown]
  - Weight increased [Unknown]
  - Cardiac failure congestive [Unknown]
  - Eructation [Unknown]
  - Blood cholesterol increased [Unknown]
